FAERS Safety Report 21342187 (Version 1)
Quarter: 2022Q3

REPORT INFORMATION
  Report Type: Spontaneous
  Country: DE (occurrence: DE)
  Receive Date: 20220916
  Receipt Date: 20220916
  Transmission Date: 20221027
  Serious: Yes (Death, Life-Threatening, Hospitalization, Disabling, Other)
  Sender: FDA-Public Use
  Company Number: DE-ROCHE-2784989

PATIENT
  Age: 80 Year
  Sex: Male
  Weight: 69 kg

DRUGS (5)
  1. DEXTROSE [Suspect]
     Active Substance: DEXTROSE
     Indication: Nutritional supplementation
     Dosage: DEXTROSE: 12.5 G, PRN, I.V 2. 12.5 G QD, I.V; 3. 12.5 G. GLUCOSE: 12.5 G, PRN IV
     Route: 050
  2. DEXTROSE [Suspect]
     Active Substance: DEXTROSE
     Indication: Off label use
  3. DEXTROSE [Suspect]
     Active Substance: DEXTROSE
     Indication: Intentional product misuse
  4. DEXTROSE [Suspect]
     Active Substance: DEXTROSE
     Indication: Nutritional supplementation
     Dosage: INTRAVENOUS (NOT OTHERWISE SPECIFIED)
     Route: 042
  5. DEXTROSE [Suspect]
     Active Substance: DEXTROSE
     Indication: Off label use

REACTIONS (65)
  - Death [Fatal]
  - Appendicolith [Fatal]
  - Sepsis [Fatal]
  - Multiple organ dysfunction syndrome [Fatal]
  - General physical health deterioration [Fatal]
  - Ascites [Fatal]
  - Appendicitis [Fatal]
  - Stress [Fatal]
  - Cardiogenic shock [Fatal]
  - Ventricular fibrillation [Fatal]
  - Hyponatraemia [Fatal]
  - Nausea [Fatal]
  - Condition aggravated [Fatal]
  - Constipation [Fatal]
  - Vomiting [Fatal]
  - Abdominal pain [Fatal]
  - Abdominal distension [Fatal]
  - Blood phosphorus increased [Fatal]
  - Somnolence [Fatal]
  - Dry mouth [Fatal]
  - Anaemia [Fatal]
  - Aspiration [Fatal]
  - Asthenia [Fatal]
  - Asthma [Fatal]
  - Blood creatinine increased [Fatal]
  - Blood test abnormal [Fatal]
  - Bronchiectasis [Fatal]
  - Bronchopulmonary aspergillosis allergic [Fatal]
  - Cough [Fatal]
  - Fatigue [Fatal]
  - Gastrooesophageal reflux disease [Fatal]
  - Haemoptysis [Fatal]
  - Hypoxia [Fatal]
  - Lower respiratory tract infection [Fatal]
  - Lung opacity [Fatal]
  - Musculoskeletal stiffness [Fatal]
  - Obstructive airways disorder [Fatal]
  - Pain [Fatal]
  - Pleural effusion [Fatal]
  - Pneumonia [Fatal]
  - Pulmonary fibrosis [Fatal]
  - Rales [Fatal]
  - Sputum discoloured [Fatal]
  - Total lung capacity decreased [Fatal]
  - Upper respiratory tract infection [Fatal]
  - Oedema peripheral [Fatal]
  - Tremor [Fatal]
  - Blood calcium increased [Fatal]
  - Liver function test increased [Fatal]
  - Pyrexia [Fatal]
  - Transaminases increased [Fatal]
  - Abdominal pain upper [Fatal]
  - Drug hypersensitivity [Fatal]
  - Dyspnoea [Fatal]
  - Headache [Fatal]
  - Wheezing [Not Recovered/Not Resolved]
  - Pulmonary mass [Not Recovered/Not Resolved]
  - Myasthenia gravis [Fatal]
  - Blood cholesterol increased [Fatal]
  - Blood uric acid increased [Fatal]
  - Incorrect route of product administration [Unknown]
  - Off label use [Fatal]
  - Off label use [Fatal]
  - Drug ineffective [Unknown]
  - Product dose omission issue [Not Recovered/Not Resolved]

NARRATIVE: CASE EVENT DATE: 20200601
